FAERS Safety Report 4604010-0 (Version None)
Quarter: 2005Q1

REPORT INFORMATION
  Report Type: 
  Country: None (occurrence: None)
  Receive Date: 20050309
  Receipt Date: 20050309
  Transmission Date: 20050727
  Serious: No
  Sender: FDA-Public Use
  Company Number: None

PATIENT
  Sex: Male
  Weight: 113 kg

DRUGS (7)
  1. RITUXIMAB [Suspect]
     Indication: AIDS RELATED COMPLICATION
     Dosage: CYCLE =21 DAYS, MAXIUM OF 6 CYCLES
     Dates: start: 20050118
  2. ETOPOSIDE [Suspect]
     Dosage: 50 MG/M2 /24 HOURS CIV BEGINNING ON DAY 1X4 DAYS
     Route: 042
  3. DOXORUBICIN HCL [Suspect]
     Dosage: 10 MG/M2/24 HOURS CIV BEGINNING DAY 1 X 4 DAYS
     Route: 042
  4. VINCRISTINE [Suspect]
     Dosage: 0.4 MG/M2 /24 HOURS CIV BEGINNING ON DAY 1X4 DAYS
     Route: 042
  5. PREDNISONE [Suspect]
     Dosage: 60 MG/M2/DAY PO DAYS 1-5
     Route: 048
  6. CYCLOPHOSPHAMIDE [Suspect]
     Dosage: 375 MG /M2 IV OVER 1 HOUR ON DAY 5
     Route: 042
  7. G-CSF [Suspect]
     Dosage: 5 UG/KG SC QD BEGINNING ON DAY 6X10 DAYS OR UNTIL NEUTROPHIL COUNT } 10, 000 CELLS/MM3
     Route: 058

REACTIONS (9)
  - ARTHRALGIA [None]
  - BACTERIA SPUTUM IDENTIFIED [None]
  - BACTERIAL INFECTION [None]
  - BONE PAIN [None]
  - FATIGUE [None]
  - FEBRILE NEUTROPENIA [None]
  - HYPOTENSION [None]
  - MYALGIA [None]
  - PRODUCTIVE COUGH [None]
